FAERS Safety Report 21171412 (Version 2)
Quarter: 2022Q3

REPORT INFORMATION
  Report Type: Spontaneous
  Country: US (occurrence: US)
  Receive Date: 20220804
  Receipt Date: 20220808
  Transmission Date: 20221027
  Serious: No
  Sender: FDA-Public Use
  Company Number: US-PFIZER INC-202201028652

PATIENT
  Age: 76 Year

DRUGS (1)
  1. PAXLOVID [Suspect]
     Active Substance: NIRMATRELVIR\RITONAVIR
     Indication: COVID-19 treatment
     Dosage: [PF-07321332 300 MG]/[RITONAVIR 100 MG]; 2X/DAY

REACTIONS (6)
  - Dysgeusia [Not Recovered/Not Resolved]
  - Abdominal pain [Unknown]
  - Feeling abnormal [Unknown]
  - Illness [Unknown]
  - Gastrointestinal disorder [Unknown]
  - Anger [Unknown]
